FAERS Safety Report 9444004 (Version 2)
Quarter: 2013Q3

REPORT INFORMATION
  Report Type: Report from Study
  Country: US (occurrence: US)
  Receive Date: 20130807
  Receipt Date: 20130813
  Transmission Date: 20140515
  Serious: Yes (Hospitalization, Other)
  Sender: FDA-Public Use
  Company Number: US-ROCHE-1248523

PATIENT
  Age: 46 Year
  Sex: Female
  Weight: 153.91 kg

DRUGS (7)
  1. PEGASYS [Suspect]
     Indication: CHRONIC HEPATITIS C
     Route: 058
     Dates: start: 20130528, end: 201307
  2. RIBAVIRIN [Suspect]
     Indication: CHRONIC HEPATITIS C
     Route: 048
  3. RIBAVIRIN [Suspect]
     Route: 048
     Dates: start: 20130528, end: 201307
  4. INCIVEK [Suspect]
     Indication: CHRONIC HEPATITIS C
     Route: 048
     Dates: start: 20130528, end: 201307
  5. DEXILANT [Concomitant]
     Route: 048
  6. MEDROXY [Concomitant]
  7. FUROSEMIDE [Concomitant]
     Dosage: EVERY OTHER DAY
     Route: 048

REACTIONS (8)
  - Cardiac failure congestive [Recovered/Resolved]
  - Dyspnoea [Unknown]
  - Blood count abnormal [Unknown]
  - Nausea [Unknown]
  - Oedema peripheral [Not Recovered/Not Resolved]
  - Oedema peripheral [Recovered/Resolved]
  - Anaemia [Recovered/Resolved]
  - Hypokalaemia [Recovered/Resolved]
